FAERS Safety Report 16776660 (Version 1)
Quarter: 2019Q3

REPORT INFORMATION
  Report Type: Spontaneous
  Country: GB (occurrence: GB)
  Receive Date: 20190905
  Receipt Date: 20190905
  Transmission Date: 20191005
  Serious: Yes (Hospitalization, Other)
  Sender: FDA-Public Use
  Company Number: GB-SA-2019SA241436

PATIENT
  Age: 33 Year
  Sex: Female

DRUGS (3)
  1. LEMTRADA [Suspect]
     Active Substance: ALEMTUZUMAB
     Indication: RELAPSING-REMITTING MULTIPLE SCLEROSIS
     Dosage: 30MG/1ML
     Route: 041
     Dates: start: 20181119
  2. DIANETTE [Concomitant]
     Active Substance: CYPROTERONE ACETATE\ETHINYL ESTRADIOL
     Dosage: UNK UNK, UNK
     Route: 065
     Dates: start: 20190704
  3. CO-CYPRINDIOL [Suspect]
     Active Substance: CYPROTERONE ACETATE\ETHINYL ESTRADIOL
     Dosage: 2000MICROGRAM/35MICROGRAM., UNK
     Route: 048
     Dates: start: 20190728

REACTIONS (4)
  - Chills [Unknown]
  - Liver injury [Recovered/Resolved with Sequelae]
  - Jaundice [Unknown]
  - Hyperhidrosis [Unknown]

NARRATIVE: CASE EVENT DATE: 20190723
